FAERS Safety Report 17323571 (Version 3)
Quarter: 2020Q4

REPORT INFORMATION
  Report Type: Report from Study
  Country: JP (occurrence: JP)
  Receive Date: 20200127
  Receipt Date: 20201120
  Transmission Date: 20210113
  Serious: Yes (Hospitalization)
  Sender: FDA-Public Use
  Company Number: JP-ROCHE-2530583

PATIENT
  Age: 13 Year
  Sex: Male
  Weight: 40.5 kg

DRUGS (2)
  1. ALECTINIB. [Suspect]
     Active Substance: ALECTINIB
     Route: 048
     Dates: start: 20190111
  2. ALECTINIB. [Suspect]
     Active Substance: ALECTINIB
     Indication: NEUROBLASTOMA
     Route: 048
     Dates: start: 20190108

REACTIONS (1)
  - Pneumothorax [Recovered/Resolved]

NARRATIVE: CASE EVENT DATE: 20200109
